FAERS Safety Report 20796810 (Version 3)
Quarter: 2022Q2

REPORT INFORMATION
  Report Type: Report from Study
  Country: US (occurrence: US)
  Receive Date: 20220506
  Receipt Date: 20220629
  Transmission Date: 20220721
  Serious: Yes (Hospitalization, Other)
  Sender: FDA-Public Use
  Company Number: US-TAKEDA-2022TUS029276

PATIENT
  Age: 66 Year
  Sex: Male
  Weight: 54 kg

DRUGS (1)
  1. MOBOCERTINIB [Suspect]
     Active Substance: MOBOCERTINIB
     Indication: Lung neoplasm malignant
     Dosage: 160 MILLIGRAM, QD
     Route: 048
     Dates: start: 20220105

REACTIONS (11)
  - Oncologic complication [Unknown]
  - Ageusia [Unknown]
  - Tongue discomfort [Unknown]
  - Lip erythema [Unknown]
  - Electrocardiogram abnormal [Unknown]
  - Erythema [Recovering/Resolving]
  - Skin exfoliation [Unknown]
  - Rash [Recovering/Resolving]
  - Dry skin [Unknown]
  - Pruritus [Recovering/Resolving]
  - Diarrhoea [Unknown]

NARRATIVE: CASE EVENT DATE: 20220501
